FAERS Safety Report 5502631-4 (Version None)
Quarter: 2007Q4

REPORT INFORMATION
  Report Type: 
  Country: None (occurrence: None)
  Receive Date: 20071031
  Receipt Date: 20071019
  Transmission Date: 20080405
  Serious: Yes (Other)
  Sender: FDA-Public Use
  Company Number: US-JNJFOC-20071005576

PATIENT
  Sex: Female
  Weight: 68.04 kg

DRUGS (1)
  1. ORTHO TRI-CYCLEN [Suspect]
     Indication: CONTRACEPTION
     Route: 048

REACTIONS (7)
  - ACCIDENTAL EXPOSURE [None]
  - DEPRESSION [None]
  - DRUG DISPENSING ERROR [None]
  - MENORRHAGIA [None]
  - SUPPRESSED LACTATION [None]
  - TOOTHACHE [None]
  - WRONG DRUG ADMINISTERED [None]
